FAERS Safety Report 8840853 (Version 1)
Quarter: 2012Q4

REPORT INFORMATION
  Report Type: 
  Country: DE (occurrence: DE)
  Receive Date: 20121015
  Receipt Date: 20121015
  Transmission Date: 20130627
  Serious: Yes (Life-Threatening, Hospitalization, Other)
  Sender: FDA-Public Use
  Company Number: DE-ELI_LILLY_AND_COMPANY-DE201210002248

PATIENT
  Sex: Female

DRUGS (1)
  1. FORSTEO [Suspect]
     Indication: OSTEOPOROSIS
     Dosage: UNK, qd
     Route: 058
     Dates: start: 20110706, end: 20120924

REACTIONS (13)
  - Medical induction of coma [Not Recovered/Not Resolved]
  - Sepsis [Unknown]
  - Nutritional supplementation [Not Recovered/Not Resolved]
  - Mechanical ventilation [Not Recovered/Not Resolved]
  - Renal failure [Not Recovered/Not Resolved]
  - Hospitalisation [Not Recovered/Not Resolved]
  - Hospitalisation [Unknown]
  - Fall [Unknown]
  - Generalised oedema [Unknown]
  - Inflammation [Unknown]
  - Oedema peripheral [Unknown]
  - Erythema [Unknown]
  - Body temperature increased [Unknown]
